FAERS Safety Report 15315206 (Version 4)
Quarter: 2018Q4

REPORT INFORMATION
  Report Type: Spontaneous
  Country: PL (occurrence: PL)
  Receive Date: 20180824
  Receipt Date: 20181128
  Transmission Date: 20190204
  Serious: Yes (Other)
  Sender: FDA-Public Use
  Company Number: PL-AUROBINDO-AUR-APL-2018-037420

PATIENT
  Age: 65 Year
  Sex: Female

DRUGS (32)
  1. ACETYLSALICYLIC ACID [Interacting]
     Active Substance: ASPIRIN
     Indication: HYPERLIPIDAEMIA
     Dosage: UNK
  2. LANSOPRAZOLE. [Interacting]
     Active Substance: LANSOPRAZOLE
     Indication: ARRHYTHMIA SUPRAVENTRICULAR
  3. PROPAFENONE HYDROCHLORIDE. [Interacting]
     Active Substance: PROPAFENONE HYDROCHLORIDE
     Indication: HYPERTENSION
  4. ATORVASTATIN [Interacting]
     Active Substance: ATORVASTATIN
     Indication: HYPERTENSION
  5. SERTRALINE [Suspect]
     Active Substance: SERTRALINE HYDROCHLORIDE
     Indication: DEPRESSION
     Dosage: 100 MILLIGRAM, ONCE A DAY, IN THE MORNING
     Route: 065
  6. AMLODIPINE [Interacting]
     Active Substance: AMLODIPINE BESYLATE
     Indication: HYPERTENSION
  7. BUSPIRON                           /00791501/ [Interacting]
     Active Substance: BUTYLSCOPOLAMINE BROMIDE\METAMIZOLE SODIUM
     Indication: DEPRESSION
     Dosage: 10 MILLIGRAM, ONCE A DAY
     Route: 065
  8. SULPIRIDE [Interacting]
     Active Substance: SULPIRIDE
     Indication: DEPRESSION
     Dosage: 150 MILLIGRAM, ONCE A DAY
     Route: 065
  9. PROPAFENONE HYDROCHLORIDE. [Interacting]
     Active Substance: PROPAFENONE HYDROCHLORIDE
     Indication: ARRHYTHMIA
     Dosage: 150 MG, QD
     Route: 065
  10. ACETYLSALICYLIC ACID [Interacting]
     Active Substance: ASPIRIN
     Indication: ARRHYTHMIA SUPRAVENTRICULAR
  11. LANSOPRAZOLE. [Interacting]
     Active Substance: LANSOPRAZOLE
     Indication: HYPERTENSION
  12. LEVOMEPROMAZINE [Interacting]
     Active Substance: LEVOMEPROMAZINE
     Indication: DEPRESSION
     Dosage: 50 MG, AT BEDTIME
  13. LEVOMEPROMAZINE [Interacting]
     Active Substance: LEVOMEPROMAZINE
     Indication: DEPRESSION
  14. PERAZINE [Interacting]
     Active Substance: PERAZINE
     Indication: DEPRESSION
     Dosage: 75 MILLIGRAM, ONCE A DAY
     Route: 065
  15. PERAZINE [Interacting]
     Active Substance: PERAZINE
     Indication: DEPRESSION
  16. PROPAFENONE HYDROCHLORIDE. [Interacting]
     Active Substance: PROPAFENONE HYDROCHLORIDE
     Indication: ARRHYTHMIA SUPRAVENTRICULAR
     Dosage: 450 MILLIGRAM, ONCE A DAY
     Route: 065
  17. SULPIRIDE [Interacting]
     Active Substance: SULPIRIDE
     Dosage: 10 MG, QD
     Route: 065
  18. ATORVASTATIN [Interacting]
     Active Substance: ATORVASTATIN
     Indication: HYPERLIPIDAEMIA
     Dosage: 20 MILLIGRAM, ONCE A DAY
     Route: 065
  19. LANSOPRAZOLE. [Interacting]
     Active Substance: LANSOPRAZOLE
     Indication: HYPOTENSION
     Dosage: 15 MILLIGRAM, ONCE A DAY
     Route: 065
  20. ENALAPRIL + HIDROCLOROTIAZIDA [Interacting]
     Active Substance: ENALAPRIL MALEATE\HYDROCHLOROTHIAZIDE
     Indication: ARRHYTHMIA SUPRAVENTRICULAR
     Dosage: 12.5 MG, QD
     Route: 065
  21. AMLODIPINE [Interacting]
     Active Substance: AMLODIPINE BESYLATE
     Indication: ARRHYTHMIA SUPRAVENTRICULAR
     Dosage: 5 MILLIGRAM, ONCE A DAY
     Route: 065
  22. LAMOTRIGINE. [Interacting]
     Active Substance: LAMOTRIGINE
     Indication: DEPRESSION
     Dosage: 150 MILLIGRAM, ONCE A DAY
     Route: 065
  23. ACETYLSALICYLIC ACID [Interacting]
     Active Substance: ASPIRIN
     Indication: HYPOTENSION
     Dosage: 75 MILLIGRAM, ONCE A DAY
     Route: 065
  24. SULPIRIDE [Interacting]
     Active Substance: SULPIRIDE
     Dosage: 50 MG, QD
     Route: 065
  25. PROPAFENONE HYDROCHLORIDE. [Interacting]
     Active Substance: PROPAFENONE HYDROCHLORIDE
     Indication: HYPERLIPIDAEMIA
  26. ACETYLSALICYLIC ACID [Interacting]
     Active Substance: ASPIRIN
     Indication: HYPERTENSION
  27. AMITRIPTYLINE [Interacting]
     Active Substance: AMITRIPTYLINE
     Indication: DEPRESSION
     Dosage: 225 MILLIGRAM, ONCE A DAY
     Route: 065
  28. LANSOPRAZOLE. [Interacting]
     Active Substance: LANSOPRAZOLE
     Indication: HYPERLIPIDAEMIA
     Dosage: UNK
  29. VINPOCETINE [Interacting]
     Active Substance: VINPOCETINE
     Indication: DEPRESSION
     Dosage: 15 MILLIGRAM, ONCE A DAY
     Route: 065
  30. CANDESARTAN CILEXETIL/HYDROCHLOROTHIAZIDE TEV [Interacting]
     Active Substance: CANDESARTAN CILEXETIL\HYDROCHLOROTHIAZIDE
     Indication: HYPERTENSION
     Dosage: 16 MG +12,5 MG, ONCE A DAY
     Route: 065
  31. ENALAPRIL + HIDROCLOROTIAZIDA [Interacting]
     Active Substance: ENALAPRIL MALEATE\HYDROCHLOROTHIAZIDE
     Indication: HYPERTENSION
     Dosage: 16 MG, QD
     Route: 065
  32. ENALAPRIL + HIDROCLOROTIAZIDA [Interacting]
     Active Substance: ENALAPRIL MALEATE\HYDROCHLOROTHIAZIDE
     Indication: HYPERLIPIDAEMIA
     Dosage: UNK

REACTIONS (26)
  - Somnolence [Recovered/Resolved]
  - Balance disorder [Recovered/Resolved]
  - Psychomotor retardation [Recovering/Resolving]
  - Flat affect [Recovering/Resolving]
  - Fall [Recovering/Resolving]
  - Anxiety [Recovered/Resolved]
  - Cognitive disorder [Recovered/Resolved]
  - Depressed mood [Recovering/Resolving]
  - Sleep disorder [Recovering/Resolving]
  - Sleep deficit [Recovered/Resolved]
  - Extrapyramidal disorder [Recovering/Resolving]
  - Overweight [Unknown]
  - Depression [Recovering/Resolving]
  - Emotional disorder [Recovering/Resolving]
  - Nervous system disorder [Recovered/Resolved]
  - Mental disorder [Recovering/Resolving]
  - Insomnia [Recovering/Resolving]
  - Bradykinesia [Recovered/Resolved]
  - Tension [Unknown]
  - Disturbance in attention [Recovering/Resolving]
  - Drug interaction [Recovering/Resolving]
  - Dizziness [Recovered/Resolved]
  - Drug ineffective [Unknown]
  - Fatigue [Recovered/Resolved]
  - Amnesia [Recovering/Resolving]
  - Anhedonia [Recovered/Resolved]
